FAERS Safety Report 9333326 (Version 6)
Quarter: 2013Q3

REPORT INFORMATION
  Report Type: Report from Study
  Country: US (occurrence: US)
  Receive Date: 20130606
  Receipt Date: 20130917
  Transmission Date: 20140515
  Serious: Yes (Hospitalization)
  Sender: FDA-Public Use
  Company Number: US-JNJFOC-20130600075

PATIENT
  Age: 18 Year
  Sex: Male
  Weight: 63.32 kg

DRUGS (11)
  1. REMICADE [Suspect]
     Indication: COLITIS ULCERATIVE
     Route: 042
  2. ABILIFY [Concomitant]
     Route: 065
  3. 5-ASA [Concomitant]
     Route: 048
  4. HYDROCORTISONE [Concomitant]
     Route: 065
  5. 6-MERCAPTOPURINE [Concomitant]
     Route: 065
  6. MUTIVITAMINS [Concomitant]
     Route: 065
  7. PROZAC [Concomitant]
     Route: 065
  8. OMEPRAZOLE [Concomitant]
     Route: 065
  9. TYLENOL [Concomitant]
     Route: 065
  10. FERROUS SULFATE [Concomitant]
     Route: 065
  11. LORATADINE [Concomitant]
     Route: 065

REACTIONS (1)
  - Anxiety [Recovered/Resolved]
